FAERS Safety Report 8387511-1 (Version None)
Quarter: 2012Q2

REPORT INFORMATION
  Report Type: 
  Country: None (occurrence: None)
  Receive Date: 20120525
  Receipt Date: 20120521
  Transmission Date: 20120825
  Serious: Yes (Other)
  Sender: FDA-Public Use
  Company Number: PHEH2012US003932

PATIENT
  Sex: Male
  Weight: 68 kg

DRUGS (3)
  1. EXJADE [Suspect]
     Indication: IRON OVERLOAD
     Dosage: 1500 MG, QD
     Route: 048
  2. BACTRIM [Concomitant]
  3. ACYCLOVIR [Concomitant]

REACTIONS (1)
  - PNEUMONIA [None]
